FAERS Safety Report 14573313 (Version 1)
Quarter: 2018Q1

REPORT INFORMATION
  Report Type: Spontaneous
  Country: IT (occurrence: IT)
  Receive Date: 20180226
  Receipt Date: 20180226
  Transmission Date: 20180509
  Serious: Yes (Other)
  Sender: FDA-Public Use
  Company Number: IT-BAYER-2017-222214

PATIENT
  Age: 49 Year
  Sex: Female
  Weight: 60 kg

DRUGS (4)
  1. NEXAVAR [Suspect]
     Active Substance: SORAFENIB
     Indication: ACUTE LEUKAEMIA
     Dosage: LOWER DOSE
     Route: 048
     Dates: start: 20171104, end: 20171107
  2. ACICLOVIR [Concomitant]
     Active Substance: ACYCLOVIR
     Indication: ANTIVIRAL PROPHYLAXIS
     Dosage: 1200 MG, UNK
     Route: 048
     Dates: start: 20171005, end: 20171103
  3. NEXAVAR [Suspect]
     Active Substance: SORAFENIB
     Indication: ACUTE LEUKAEMIA
     Dosage: DAILY DOSE 800 MG
     Route: 048
     Dates: start: 20171014, end: 20171107
  4. ACICLOVIR [Concomitant]
     Active Substance: ACYCLOVIR
     Indication: ANTIVIRAL PROPHYLAXIS
     Dosage: 1200 MG DAILY
     Route: 048
     Dates: start: 20171005, end: 20171103

REACTIONS (7)
  - Acute leukaemia [None]
  - Product use in unapproved indication [None]
  - Feeling abnormal [None]
  - Off label use [None]
  - Rash generalised [Recovering/Resolving]
  - Rash [Recovering/Resolving]
  - Rash morbilliform [Recovering/Resolving]

NARRATIVE: CASE EVENT DATE: 20171025
